FAERS Safety Report 12643022 (Version 2)
Quarter: 2016Q3

REPORT INFORMATION
  Report Type: Spontaneous
  Country: US (occurrence: US)
  Receive Date: 20160811
  Receipt Date: 20160817
  Transmission Date: 20161109
  Serious: Yes (Other)
  Sender: FDA-Public Use
  Company Number: US-HORIZON-ACT-0186-2016

PATIENT
  Age: 17 Year
  Sex: Male

DRUGS (33)
  1. CEPHALEXIN. [Concomitant]
     Active Substance: CEPHALEXIN
  2. VENTOLIN HFA [Concomitant]
     Active Substance: ALBUTEROL SULFATE
  3. LIDOCAINE / PRILOCAINE [Concomitant]
  4. SINGULAIR [Concomitant]
     Active Substance: MONTELUKAST SODIUM
  5. ONDANSETRON [Concomitant]
     Active Substance: ONDANSETRON
  6. IBUPROFEN. [Concomitant]
     Active Substance: IBUPROFEN
  7. VFEND [Concomitant]
     Active Substance: VORICONAZOLE
  8. ZOFRAN [Concomitant]
     Active Substance: ONDANSETRON HYDROCHLORIDE
  9. BACTROBAN [Concomitant]
     Active Substance: MUPIROCIN\MUPIROCIN CALCIUM
  10. CEFDINIR. [Concomitant]
     Active Substance: CEFDINIR
  11. HYDROCODONE BITARTRATE AND ACETAMINOPHEN [Concomitant]
     Active Substance: ACETAMINOPHEN\HYDROCODONE BITARTRATE
  12. QVAR [Concomitant]
     Active Substance: BECLOMETHASONE DIPROPIONATE
  13. NASONEX [Concomitant]
     Active Substance: MOMETASONE FUROATE
  14. CYPROHEPTADINE. [Concomitant]
     Active Substance: CYPROHEPTADINE
  15. ACTIMMUNE [Suspect]
     Active Substance: INTERFERON GAMMA-1B
     Indication: NEUTROPHIL FUNCTION DISORDER
     Dosage: 0.395 CC TIW
     Route: 058
     Dates: start: 20151229
  16. PATANOL [Concomitant]
     Active Substance: OLOPATADINE HYDROCHLORIDE
  17. AMOXICILLIN. [Concomitant]
     Active Substance: AMOXICILLIN
  18. SULFAMETHOXAZOLE [Concomitant]
     Active Substance: SULFAMETHOXAZOLE
  19. AZITHROMYCIN ANHYDROUS. [Concomitant]
     Active Substance: AZITHROMYCIN ANHYDROUS
  20. INSULIN [Concomitant]
     Active Substance: INSULIN NOS
  21. CETIRIZINE [Concomitant]
     Active Substance: CETIRIZINE HYDROCHLORIDE
  22. SULFATRIM [Concomitant]
     Active Substance: SULFAMETHOXAZOLE\TRIMETHOPRIM
  23. POVIDONE-IODINE. [Concomitant]
     Active Substance: POVIDONE-IODINE
  24. CIPRO [Concomitant]
     Active Substance: CIPROFLOXACIN HYDROCHLORIDE
  25. POLYETHYLENE GLYCOL [Concomitant]
     Active Substance: POLYETHYLENE GLYCOLS
  26. PROVENTIL [Concomitant]
     Active Substance: ALBUTEROL
  27. ASTEPRO [Concomitant]
     Active Substance: AZELASTINE HYDROCHLORIDE
  28. OMEPRAZOLE. [Concomitant]
     Active Substance: OMEPRAZOLE
  29. BREATHE RIGHT [Concomitant]
  30. MICROCHAMBER [Concomitant]
  31. NYSTATIN / TRIAMCINOLONE [Concomitant]
  32. FERROUS SULFATE. [Concomitant]
     Active Substance: FERROUS SULFATE
  33. MULTIVITAMIN [Concomitant]
     Active Substance: VITAMINS

REACTIONS (2)
  - Nausea [Not Recovered/Not Resolved]
  - Headache [Not Recovered/Not Resolved]

NARRATIVE: CASE EVENT DATE: 201608
